FAERS Safety Report 24293892 (Version 1)
Quarter: 2024Q3

REPORT INFORMATION
  Report Type: Spontaneous
  Country: US (occurrence: None)
  Receive Date: 20240906
  Receipt Date: 20240906
  Transmission Date: 20241016
  Serious: No
  Sender: DOMPE FARMACEUTICI
  Company Number: US-FARMAPROD-202308-202403-0805

PATIENT
  Sex: Male

DRUGS (18)
  1. OXERVATE [Suspect]
     Active Substance: CENEGERMIN-BKBJ
     Indication: Neurotrophic keratopathy
     Route: 047
     Dates: start: 20240213
  2. OXERVATE [Suspect]
     Active Substance: CENEGERMIN-BKBJ
     Indication: Hypoaesthesia eye
  3. HYDROCHLOROTHIAZIDE [Concomitant]
     Active Substance: HYDROCHLOROTHIAZIDE
  4. FENOFIBRATE [Concomitant]
     Active Substance: FENOFIBRATE
  5. IRBESARTAN [Concomitant]
     Active Substance: IRBESARTAN
  6. DILTIAZEM [Concomitant]
     Active Substance: DILTIAZEM
     Dosage: 24HR EXTENDED RELEASE
  7. PRAVASTATIN SODIUM [Concomitant]
     Active Substance: PRAVASTATIN SODIUM
  8. VITAMIN D3 [Concomitant]
     Active Substance: CHOLECALCIFEROL
  9. MINERALS\VITAMINS [Concomitant]
     Active Substance: MINERALS\VITAMINS
     Dosage: 2148-113
  10. FISH OIL [Concomitant]
     Active Substance: FISH OIL
     Dosage: 100-160 MG
  11. VITAMIN B12 [Concomitant]
     Active Substance: CYANOCOBALAMIN
  12. ASPIRIN [Concomitant]
     Active Substance: ASPIRIN
  13. COLLAGEN [Concomitant]
     Active Substance: COLLAGEN
     Dosage: 125-740MG
  14. DORZOLAMIDE HYDROCHLORIDE [Concomitant]
     Active Substance: DORZOLAMIDE HYDROCHLORIDE
  15. ALPHAGAN P [Concomitant]
     Active Substance: BRIMONIDINE TARTRATE
  16. REFRESH OPTIVE ADVANCED [Concomitant]
     Active Substance: CARBOXYMETHYLCELLULOSE SODIUM\GLYCERIN\POLYSORBATE 80
  17. SYSTANE GEL [Concomitant]
  18. CLINPRO 5000 [Concomitant]
     Active Substance: SODIUM FLUORIDE

REACTIONS (1)
  - Product dose omission issue [Unknown]
